FAERS Safety Report 14939276 (Version 1)
Quarter: 2018Q2

REPORT INFORMATION
  Report Type: Spontaneous
  Country: PL (occurrence: PL)
  Receive Date: 20180525
  Receipt Date: 20180525
  Transmission Date: 20180711
  Serious: Yes (Other)
  Sender: FDA-Public Use
  Company Number: PL-IMPAX LABORATORIES, INC-2018-IPXL-01714

PATIENT
  Age: 4 Year
  Sex: Female

DRUGS (1)
  1. ANAGRELIDE HYDROCHLORIDE. [Suspect]
     Active Substance: ANAGRELIDE HYDROCHLORIDE
     Indication: ESSENTIAL THROMBOCYTHAEMIA
     Dosage: UNK
     Route: 065

REACTIONS (4)
  - Budd-Chiari syndrome [Recovered/Resolved]
  - Pleural effusion [Unknown]
  - Dermatitis herpetiformis [Recovered/Resolved]
  - Coeliac disease [Unknown]
